FAERS Safety Report 5140607-X (Version None)
Quarter: 2006Q4

REPORT INFORMATION
  Report Type: 
  Country: None (occurrence: None)
  Receive Date: 20061024
  Receipt Date: 20061002
  Transmission Date: 20070319
  Serious: Yes (Other)
  Sender: FDA-Public Use
  Company Number: CA200610002061

PATIENT
  Age: 78 Year
  Sex: Female

DRUGS (7)
  1. FORTEO [Suspect]
     Indication: OSTEOPOROSIS
     Dosage: 20 UG, DAILY (1/D)
     Dates: start: 20051014
  2. FORTEO [Concomitant]
  3. BISOPROLOL FUMARATE [Concomitant]
  4. APO-TRIAZIDE (HYDROCHLOROTHIAZIDE, TRIAMTERENE) [Concomitant]
  5. NOVO-SEMIDE (FUROSEMIDE) [Concomitant]
  6. CALCIUM (CALCIUM) [Concomitant]
  7. VITAMIN D NOS (VITAMIN D NOS) [Concomitant]

REACTIONS (2)
  - ANGINA PECTORIS [None]
  - DIABETES MELLITUS [None]
